FAERS Safety Report 25661716 (Version 1)
Quarter: 2025Q3

REPORT INFORMATION
  Report Type: Spontaneous
  Country: US (occurrence: US)
  Receive Date: 20250808
  Receipt Date: 20250808
  Transmission Date: 20251021
  Serious: No
  Sender: MADRIGAL PHARMACEUTICALS
  Company Number: US-MADRIGAL PHARMACEUTICALS, INC-2025REZ8843

PATIENT

DRUGS (2)
  1. REZDIFFRA [Suspect]
     Active Substance: RESMETIROM
     Indication: Metabolic dysfunction-associated steatohepatitis
     Route: 065
     Dates: start: 202504, end: 2025
  2. REZDIFFRA [Suspect]
     Active Substance: RESMETIROM
     Route: 065
     Dates: start: 2025

REACTIONS (3)
  - Serum ferritin increased [Not Recovered/Not Resolved]
  - Weight decreased [Unknown]
  - Blood bilirubin increased [Not Recovered/Not Resolved]

NARRATIVE: CASE EVENT DATE: 20250101
